FAERS Safety Report 18698252 (Version 1)
Quarter: 2021Q1

REPORT INFORMATION
  Report Type: Report from Study
  Country: US (occurrence: US)
  Receive Date: 20210105
  Receipt Date: 20210105
  Transmission Date: 20210419
  Serious: Yes (Hospitalization, Other)
  Sender: FDA-Public Use
  Company Number: US-SA-2017SA268315

PATIENT

DRUGS (2)
  1. ALEMTUZUMAB [Suspect]
     Active Substance: ALEMTUZUMAB
     Dosage: 12 MG, QD
     Route: 041
     Dates: start: 20161128, end: 20161202
  2. ALEMTUZUMAB [Suspect]
     Active Substance: ALEMTUZUMAB
     Indication: MULTIPLE SCLEROSIS
     Dosage: 12 MG, QD
     Route: 041
     Dates: start: 20171204, end: 20171206

REACTIONS (5)
  - Abdominal discomfort [Not Recovered/Not Resolved]
  - Immune thrombocytopenia [Unknown]
  - Platelet count decreased [Unknown]
  - Multiple sclerosis [Unknown]
  - Asthenia [Unknown]

NARRATIVE: CASE EVENT DATE: 20171208
